FAERS Safety Report 9286584 (Version 2)
Quarter: 2013Q2

REPORT INFORMATION
  Report Type: Spontaneous
  Country: TR (occurrence: TR)
  Receive Date: 20130513
  Receipt Date: 20130513
  Transmission Date: 20140414
  Serious: Yes (Other)
  Sender: FDA-Public Use
  Company Number: TR-ACTAVIS-2011-21294

PATIENT
  Age: 47 Year
  Sex: Female

DRUGS (1)
  1. PARACETAMOL (UNKNOWN) [Suspect]
     Indication: PRODUCT USED FOR UNKNOWN INDICATION
     Dosage: UNKNOWN
     Route: 065

REACTIONS (5)
  - Hypersensitivity [Unknown]
  - Dizziness [Unknown]
  - Nausea [Unknown]
  - Chest discomfort [Unknown]
  - Drug hypersensitivity [None]
